FAERS Safety Report 8283131-8 (Version None)
Quarter: 2012Q2

REPORT INFORMATION
  Report Type: 
  Country: None (occurrence: None)
  Receive Date: 20120413
  Receipt Date: 20120406
  Transmission Date: 20120825
  Serious: Yes (Hospitalization)
  Sender: FDA-Public Use
  Company Number: US-GLAXOSMITHKLINE-A0971055A

PATIENT
  Age: 73 Year
  Sex: Male
  Weight: 73 kg

DRUGS (16)
  1. PREDNISONE TAB [Suspect]
     Indication: MULTIPLE MYELOMA
     Dosage: 100MG CYCLIC
     Route: 048
     Dates: start: 20110418, end: 20120301
  2. COMPAZINE [Concomitant]
     Indication: NAUSEA
     Dosage: 10MG SEE DOSAGE TEXT
     Route: 048
  3. NORVASC [Concomitant]
     Dosage: 10MG PER DAY
     Route: 048
  4. MELPHALAN HYDROCHLORIDE [Suspect]
     Indication: MULTIPLE MYELOMA
     Dosage: 12MG CYCLIC
     Route: 048
     Dates: start: 20110418, end: 20120301
  5. DILAUDID [Concomitant]
     Dosage: 2MG SEE DOSAGE TEXT
  6. MIRALAX [Concomitant]
     Dosage: 1PACK SEE DOSAGE TEXT
  7. ZOCOR [Concomitant]
     Dosage: 40MG AT NIGHT
     Route: 048
  8. ZOVIRAX [Concomitant]
     Dosage: 400MG PER DAY
  9. TOPROL-XL [Concomitant]
     Dosage: 75MG PER DAY
  10. RENVELA [Concomitant]
     Dosage: 800MG THREE TIMES PER DAY
     Route: 048
  11. PHENERGAN HCL [Concomitant]
     Indication: NAUSEA
     Dosage: 125MG SEE DOSAGE TEXT
  12. AMBIEN [Concomitant]
     Indication: INSOMNIA
     Dosage: 10MG SEE DOSAGE TEXT
     Route: 048
  13. MEGACE [Concomitant]
     Dosage: 10ML TWICE PER DAY
  14. VELCADE [Suspect]
     Indication: MULTIPLE MYELOMA
     Dosage: 1.3MGM2 WEEKLY
     Route: 042
     Dates: start: 20110418, end: 20120301
  15. PHILLIPS [Concomitant]
     Route: 048
  16. FLOMAX [Concomitant]
     Dosage: .4MG AT NIGHT
     Route: 048

REACTIONS (18)
  - RENAL DISORDER [None]
  - NUCLEAR MAGNETIC RESONANCE IMAGING ABNORMAL [None]
  - LUNG CONSOLIDATION [None]
  - ABDOMINAL PAIN UPPER [None]
  - FLUID OVERLOAD [None]
  - PNEUMONITIS [None]
  - PNEUMONIA [None]
  - CHOLELITHIASIS [None]
  - ATELECTASIS [None]
  - NEOPLASM MALIGNANT [None]
  - DIVERTICULUM [None]
  - CHEST X-RAY ABNORMAL [None]
  - HEPATIC MASS [None]
  - RENAL MASS [None]
  - INGUINAL HERNIA [None]
  - RENAL CYST [None]
  - BILIARY TRACT DISORDER [None]
  - PANCREATITIS [None]
